FAERS Safety Report 5902447-0 (Version None)
Quarter: 2008Q3

REPORT INFORMATION
  Report Type: 
  Country: None (occurrence: None)
  Receive Date: 20080929
  Receipt Date: 20080924
  Transmission Date: 20090109
  Serious: Yes (Other)
  Sender: FDA-Public Use
  Company Number: US-ASTRAZENECA-2008UW20298

PATIENT
  Age: 87 Year
  Sex: Female

DRUGS (4)
  1. NEXIUM [Suspect]
     Indication: GASTROOESOPHAGEAL REFLUX DISEASE
     Route: 048
  2. NEXIUM [Suspect]
     Dosage: 40 MG EVERY OTHER DAY
     Route: 048
  3. NEXIUM [Suspect]
     Dosage: 40 MG EVERY TWO DAYS
     Route: 048
  4. NEXIUM [Suspect]
     Dosage: 40 MG EVERY THIRD DAY
     Route: 048
     Dates: start: 20060101

REACTIONS (5)
  - AORTIC STENOSIS [None]
  - ASTHMA [None]
  - DRUG INEFFECTIVE [None]
  - HYPERSENSITIVITY [None]
  - OSTEOARTHRITIS [None]
